FAERS Safety Report 8295605-4 (Version None)
Quarter: 2012Q2

REPORT INFORMATION
  Report Type: 
  Country: None (occurrence: None)
  Receive Date: 20120416
  Receipt Date: 20120411
  Transmission Date: 20120825
  Serious: Yes (Hospitalization)
  Sender: FDA-Public Use
  Company Number: GER/UKI/12/0023860

PATIENT
  Age: 76 Year
  Sex: Female
  Weight: 55 kg

DRUGS (8)
  1. RAMIPRIL [Suspect]
     Indication: PRODUCT USED FOR UNKNOWN INDICATION
     Dosage: 2.5 MG, 1 IN 1 D, ORAL
     Route: 048
     Dates: end: 20120305
  2. LANSOPRAZOLE [Concomitant]
  3. SPIRIVA [Concomitant]
  4. FUROSEMIDE [Concomitant]
  5. SERETIDE (SERETIDE) [Concomitant]
  6. SIMVASTATIN [Suspect]
     Indication: PRODUCT USED FOR UNKNOWN INDICATION
     Dosage: 20 MG, 1 IN 1 D, ORAL
     Route: 048
     Dates: end: 20120305
  7. ASPIRIN [Concomitant]
  8. CIPROFLOXACIN [Suspect]
     Indication: LIVER ABSCESS
     Dosage: 750 MG, 2 IN 1 D, ORAL
     Route: 048
     Dates: start: 20120216, end: 20120305

REACTIONS (2)
  - DEHYDRATION [None]
  - RENAL FAILURE ACUTE [None]
